FAERS Safety Report 11848684 (Version 1)
Quarter: 2015Q4

REPORT INFORMATION
  Report Type: Report from Study
  Country: GB (occurrence: GB)
  Receive Date: 20151218
  Receipt Date: 20151218
  Transmission Date: 20160305
  Serious: Yes (Hospitalization)
  Sender: FDA-Public Use
  Company Number: GB-ABBVIE-15K-167-1518601-00

PATIENT
  Age: 51 Year
  Sex: Female

DRUGS (1)
  1. HUMIRA [Suspect]
     Active Substance: ADALIMUMAB
     Indication: RHEUMATOID ARTHRITIS
     Route: 058
     Dates: start: 20050310, end: 20140716

REACTIONS (5)
  - Inflammatory marker increased [Unknown]
  - Mobility decreased [Recovering/Resolving]
  - Synovitis [Unknown]
  - Rheumatoid arthritis [Unknown]
  - Joint effusion [Unknown]

NARRATIVE: CASE EVENT DATE: 20140728
